FAERS Safety Report 12587064 (Version 3)
Quarter: 2016Q3

REPORT INFORMATION
  Report Type: Spontaneous
  Country: GB (occurrence: GB)
  Receive Date: 20160725
  Receipt Date: 20160815
  Transmission Date: 20161109
  Serious: Yes (Other)
  Sender: FDA-Public Use
  Company Number: GB-009507513-1607GBR007053

PATIENT
  Age: 62 Year
  Sex: Female
  Weight: 61.68 kg

DRUGS (2)
  1. LOSARTAN POTASSIUM. [Suspect]
     Active Substance: LOSARTAN POTASSIUM
     Indication: HYPERTENSION
     Dosage: 50 MG, UNK
     Route: 048
     Dates: start: 20160408, end: 20160422
  2. ACETAMINOPHEN. [Concomitant]
     Active Substance: ACETAMINOPHEN
     Dosage: UNK
     Route: 048

REACTIONS (3)
  - Diplopia [Not Recovered/Not Resolved]
  - Corneal reflex decreased [Not Recovered/Not Resolved]
  - Altered visual depth perception [Not Recovered/Not Resolved]

NARRATIVE: CASE EVENT DATE: 20160412
